FAERS Safety Report 19472511 (Version 1)
Quarter: 2021Q2

REPORT INFORMATION
  Report Type: Spontaneous
  Country: FR (occurrence: FR)
  Receive Date: 20210629
  Receipt Date: 20210629
  Transmission Date: 20210717
  Serious: Yes (Other)
  Sender: FDA-Public Use
  Company Number: FR-US-PROVELL PHARMACEUTICALS LLC-9247126

PATIENT
  Sex: Female

DRUGS (2)
  1. LEVOTHYROX [Suspect]
     Active Substance: LEVOTHYROXINE
     Dosage: ALTERNATING DOSES OF 75 AND 100
     Dates: start: 201709, end: 201712
  2. LEVOTHYROX [Suspect]
     Active Substance: LEVOTHYROXINE
     Indication: AUTOIMMUNE THYROIDITIS
     Dosage: 75 (UNSPECIFIED UNIT)
     Dates: start: 201705, end: 201709

REACTIONS (21)
  - Asthma [Unknown]
  - Anxiety [Unknown]
  - Tracheitis [Unknown]
  - Fatigue [Not Recovered/Not Resolved]
  - Suicidal ideation [Unknown]
  - Impulsive behaviour [Unknown]
  - Hypoacusis [Recovered/Resolved]
  - Diarrhoea [Recovered/Resolved]
  - Memory impairment [Unknown]
  - General physical health deterioration [Unknown]
  - Insomnia [Recovered/Resolved]
  - Depression [Unknown]
  - Weight increased [Recovered/Resolved]
  - Hyperhidrosis [Unknown]
  - Bronchitis [Unknown]
  - Weight decreased [Unknown]
  - Stress [Unknown]
  - Dizziness [Not Recovered/Not Resolved]
  - Disturbance in attention [Unknown]
  - Anosmia [Unknown]
  - Somnolence [Unknown]

NARRATIVE: CASE EVENT DATE: 2017
